FAERS Safety Report 15424981 (Version 1)
Quarter: 2018Q3

REPORT INFORMATION
  Report Type: Spontaneous
  Country: US (occurrence: US)
  Receive Date: 20180917
  Receipt Date: 20180917
  Transmission Date: 20181010
  Serious: Yes (Hospitalization)
  Sender: FDA-Public Use
  Company Number: None

PATIENT
  Sex: Female

DRUGS (11)
  1. ACYCLOVIR. [Concomitant]
     Active Substance: ACYCLOVIR
  2. OMEGA?3 ACIDS [Concomitant]
     Active Substance: OMEGA-3 FATTY ACIDS
  3. FORTEO [Suspect]
     Active Substance: TERIPARATIDE
     Indication: OSTEOPOROSIS
     Route: 058
     Dates: start: 20170110
  4. ASPIRIN. [Concomitant]
     Active Substance: ASPIRIN
  5. ZOVIRAX [Concomitant]
     Active Substance: ACYCLOVIR
  6. TAMSULOSIN [Concomitant]
     Active Substance: TAMSULOSIN
  7. MORPHINE [Concomitant]
     Active Substance: MORPHINE
  8. ZOMIG [Concomitant]
     Active Substance: ZOLMITRIPTAN
  9. CALCIUM+D [Concomitant]
     Active Substance: CALCIUM\VITAMIN D
  10. FAMOTIDINE. [Concomitant]
     Active Substance: FAMOTIDINE
  11. GLUCOS/CHOND [Concomitant]

REACTIONS (1)
  - Nephrolithiasis [None]
